FAERS Safety Report 11220980 (Version 6)
Quarter: 2016Q2

REPORT INFORMATION
  Report Type: Spontaneous
  Country: US (occurrence: US)
  Receive Date: 20150626
  Receipt Date: 20160516
  Transmission Date: 20160815
  Serious: Yes (Hospitalization, Disabling, Other)
  Sender: FDA-Public Use
  Company Number: US-009507513-1206USA01277

PATIENT
  Sex: Female
  Weight: 97.51 kg

DRUGS (6)
  1. ALENDRONATE SODIUM. [Suspect]
     Active Substance: ALENDRONATE SODIUM
     Indication: OSTEOPENIA
  2. FOSAMAX [Suspect]
     Active Substance: ALENDRONATE SODIUM
     Indication: OSTEOPENIA
     Dosage: UNK UNK, QD
     Route: 048
     Dates: end: 201003
  3. ALENDRONATE SODIUM. [Suspect]
     Active Substance: ALENDRONATE SODIUM
     Indication: OSTEOPOROSIS
     Dosage: 70 MG, UNK
     Route: 048
     Dates: start: 200902, end: 201003
  4. VITAMIN D [Concomitant]
     Active Substance: CHOLECALCIFEROL
     Indication: VITAMIN D DEFICIENCY
     Dosage: 1 TABLET, UNK
     Route: 065
     Dates: start: 1995
  5. FOSAMAX [Suspect]
     Active Substance: ALENDRONATE SODIUM
     Indication: OSTEOPOROSIS
     Dosage: 70 MG, QW
     Route: 048
     Dates: start: 200210, end: 200902
  6. CALCIUM (UNSPECIFIED) [Concomitant]
     Active Substance: CALCIUM
     Dosage: 1200 MG, UNK
     Route: 065
     Dates: start: 1995

REACTIONS (28)
  - Humerus fracture [Unknown]
  - Pseudoparalysis [Unknown]
  - Agitation [Unknown]
  - Anaemia postoperative [Unknown]
  - Low turnover osteopathy [Unknown]
  - Jaw fracture [Unknown]
  - Depression [Unknown]
  - Sternal injury [Unknown]
  - Osteoporosis [Unknown]
  - Femur fracture [Recovering/Resolving]
  - Breast tenderness [Unknown]
  - Meralgia paraesthetica [Not Recovered/Not Resolved]
  - Bone disorder [Unknown]
  - Myalgia [Recovering/Resolving]
  - Poor quality sleep [Unknown]
  - Fracture nonunion [Unknown]
  - Lymphadenopathy [Unknown]
  - Muscle strain [Unknown]
  - Pneumonia [Unknown]
  - Biopsy breast [Unknown]
  - Neutropenia [Unknown]
  - Anxiety [Unknown]
  - Insomnia [Unknown]
  - Intervertebral disc degeneration [Not Recovered/Not Resolved]
  - Osteoarthritis [Unknown]
  - Femur fracture [Unknown]
  - Femur fracture [Unknown]
  - Oral surgery [Recovering/Resolving]

NARRATIVE: CASE EVENT DATE: 2005
